FAERS Safety Report 11427772 (Version 1)
Quarter: 2015Q3

REPORT INFORMATION
  Report Type: Report from Study
  Country: BE (occurrence: BE)
  Receive Date: 20150828
  Receipt Date: 20150828
  Transmission Date: 20151125
  Serious: Yes (Death, Life-Threatening, Other)
  Sender: FDA-Public Use
  Company Number: BE-ROCHE-1142454

PATIENT

DRUGS (1)
  1. BEVACIZUMAB [Suspect]
     Active Substance: BEVACIZUMAB
     Indication: GLIOBLASTOMA
     Route: 042

REACTIONS (21)
  - Hypernatraemia [Unknown]
  - Sepsis [Unknown]
  - Proteinuria [Unknown]
  - Headache [Unknown]
  - Deep vein thrombosis [Fatal]
  - Pulmonary embolism [Fatal]
  - Hyperglycaemia [Unknown]
  - Myocardial infarction [Unknown]
  - Ischaemic stroke [Unknown]
  - Epilepsy [Unknown]
  - Diarrhoea [Unknown]
  - Visual acuity reduced [Unknown]
  - Thrombocytopenia [Unknown]
  - Hypertension [Unknown]
  - Infection [Unknown]
  - Epistaxis [Unknown]
  - Dysphonia [Unknown]
  - Haemorrhage intracranial [Unknown]
  - Wound dehiscence [Unknown]
  - Hyperkalaemia [Unknown]
  - Fatigue [Unknown]
